FAERS Safety Report 18619321 (Version 2)
Quarter: 2020Q4

REPORT INFORMATION
  Report Type: Spontaneous
  Country: US (occurrence: US)
  Receive Date: 20201215
  Receipt Date: 20201221
  Transmission Date: 20210114
  Serious: No
  Sender: FDA-Public Use
  Company Number: US-PFIZER INC-2020491675

PATIENT
  Age: 52 Year
  Sex: Female

DRUGS (1)
  1. XELJANZ [Suspect]
     Active Substance: TOFACITINIB CITRATE
     Indication: PSORIATIC ARTHROPATHY
     Dosage: UNK

REACTIONS (5)
  - Blood immunoglobulin M increased [Unknown]
  - Blood immunoglobulin G decreased [Unknown]
  - Anosmia [Unknown]
  - Blood immunoglobulin A decreased [Unknown]
  - Hypergammaglobulinaemia benign monoclonal [Unknown]

NARRATIVE: CASE EVENT DATE: 2020
